FAERS Safety Report 8461131-2 (Version None)
Quarter: 2012Q2

REPORT INFORMATION
  Report Type: 
  Country: None (occurrence: None)
  Receive Date: 20120625
  Receipt Date: 20120618
  Transmission Date: 20120825
  Serious: No
  Sender: FDA-Public Use
  Company Number: US-PFIZER INC-2012132679

PATIENT
  Sex: Female
  Weight: 95.238 kg

DRUGS (12)
  1. SEROQUEL [Concomitant]
     Indication: DEPRESSION
     Dosage: 200 MG, DAILY
  2. TRAZODONE [Concomitant]
     Indication: SLEEP DISORDER
     Dosage: 5 MG, AS NEEDED
  3. SUTENT [Suspect]
     Indication: PANCREATIC CARCINOMA
     Dosage: 12.5 MG, 3X/DAY
     Dates: start: 20120428
  4. ZANTAC [Concomitant]
     Indication: DYSPEPSIA
     Dosage: 150 MG, AS NEEDED
  5. CELEXA [Concomitant]
  6. LEXAPRO [Concomitant]
     Indication: ANXIETY
  7. INSULIN [Concomitant]
     Indication: DIABETES MELLITUS
     Dosage: UNK
  8. LEXAPRO [Concomitant]
     Indication: DEPRESSION
     Dosage: 40 MG, DAILY
  9. SUTENT [Suspect]
     Indication: HEPATIC NEOPLASM MALIGNANT
  10. SEROQUEL [Concomitant]
     Indication: ANXIETY
  11. LIPITOR [Concomitant]
     Indication: BLOOD CHOLESTEROL INCREASED
     Dosage: 40 MG, AT EVENING
  12. LISINOPRIL [Concomitant]
     Dosage: 20 MG, DAILY

REACTIONS (5)
  - GLOSSODYNIA [None]
  - ORAL PAIN [None]
  - ORAL HERPES [None]
  - WEIGHT DECREASED [None]
  - STOMATITIS [None]
